FAERS Safety Report 9290588 (Version 3)
Quarter: 2013Q4

REPORT INFORMATION
  Report Type: Report from Study
  Country: US (occurrence: US)
  Receive Date: 20130107
  Receipt Date: 20131226
  Transmission Date: 20140711
  Serious: Yes (Other)
  Sender: FDA-Public Use
  Company Number: PHEH2012US005416

PATIENT
  Age: 61 Year
  Sex: Female

DRUGS (7)
  1. GILENYA [Suspect]
     Indication: MULTIPLE SCLEROSIS
     Dosage: 0.5 MG, QD
     Route: 048
     Dates: start: 20110826
  2. FAMPRIDINE (FAMPRIDINE) [Concomitant]
     Dosage: 0.5 MG, BID
     Route: 048
     Dates: start: 201108
  3. CYCLOBENZAPRINE (CYCLOBENZAPRINE) [Concomitant]
     Dosage: 0.5 MG, QD
     Route: 048
     Dates: start: 20110916, end: 20130308
  4. PERCOCET (OXYCODONE HYDROCHLORIDE, PARACETAMOL) TABLET [Concomitant]
     Indication: MOBILITY DECREASED
     Dosage: 10 MG, UNK
  5. ALEVE (NAPROXEN SODIUM) [Concomitant]
     Dosage: 10 MG, UNK
  6. B COMPLEX (NICOTINAMIDE, PYRIDOXINE HYDROCHLORIDE, RIBOFLAVIN, THIAMINE HYDROCHLORIDE) TABLET [Concomitant]
     Dosage: 5-325 MG
  7. VITAMIN D (ERGOCALCIFEROL) [Concomitant]

REACTIONS (7)
  - Myelopathy [Unknown]
  - Mobility decreased [Not Recovered/Not Resolved]
  - Back pain [Unknown]
  - Dizziness [Unknown]
  - Overdose [Unknown]
  - Drug ineffective [Unknown]
  - Dizziness [None]
